FAERS Safety Report 10715865 (Version 1)
Quarter: 2015Q1

REPORT INFORMATION
  Report Type: Spontaneous
  Country: US (occurrence: None)
  Receive Date: 20150109
  Receipt Date: 20150109
  Transmission Date: 20150721
  Serious: Yes (Hospitalization)
  Sender: FDA-Public Use
  Company Number: 2014PROUSA04090

PATIENT
  Age: 62 Year
  Sex: Male
  Weight: 88.4 kg

DRUGS (10)
  1. ADVIL [Concomitant]
     Active Substance: IBUPROFEN
  2. ASPIRIN. [Concomitant]
     Active Substance: ASPIRIN
  3. GABAPENTIN (GABAPENTIN) [Concomitant]
     Active Substance: GABAPENTIN
  4. PERCOCET (OXYCODONE HYDROCHLORIDE, PARACETAMOL) [Concomitant]
  5. PROVENGE [Suspect]
     Active Substance: SIPULEUCEL-T
     Indication: PROSTATE CANCER METASTATIC
     Route: 042
     Dates: start: 20140925, end: 20140925
  6. LUPRON (LEUPRORELIN ACETATE) [Concomitant]
  7. SYNTHROID [Concomitant]
     Active Substance: LEVOTHYROXINE SODIUM
  8. MEGESTROL ACETATE (MEGESTROL ACETATE) [Concomitant]
  9. DECADRON [Suspect]
     Active Substance: DEXAMETHASONE
     Indication: METASTASES TO CENTRAL NERVOUS SYSTEM
     Dates: start: 201410
  10. CASODEX [Concomitant]
     Active Substance: BICALUTAMIDE

REACTIONS (6)
  - Pulmonary mass [None]
  - Leukocytosis [None]
  - Leukaemoid reaction [None]
  - Metastases to central nervous system [None]
  - Peripheral swelling [None]
  - Fall [None]

NARRATIVE: CASE EVENT DATE: 20141010
